FAERS Safety Report 20195497 (Version 1)
Quarter: 2021Q4

REPORT INFORMATION
  Report Type: Report from Study
  Country: US (occurrence: US)
  Receive Date: 20211216
  Receipt Date: 20211216
  Transmission Date: 20220304
  Serious: Yes (Other)
  Sender: FDA-Public Use
  Company Number: US-GW PHARMA-202112USGW06119

PATIENT

DRUGS (1)
  1. EPIDIOLEX [Interacting]
     Active Substance: CANNABIDIOL
     Indication: Seizure
     Dosage: 530 MILLIGRAM
     Route: 048

REACTIONS (2)
  - Drug interaction [Not Recovered/Not Resolved]
  - Diarrhoea [Unknown]
